FAERS Safety Report 24308356 (Version 7)
Quarter: 2025Q2

REPORT INFORMATION
  Report Type: Report from Study
  Country: US (occurrence: US)
  Receive Date: 20240911
  Receipt Date: 20250610
  Transmission Date: 20250717
  Serious: Yes (Other)
  Sender: NOVARTIS
  Company Number: US-002147023-NVSC2024US181402

PATIENT
  Sex: Female

DRUGS (9)
  1. KESIMPTA [Suspect]
     Active Substance: OFATUMUMAB
     Indication: Multiple sclerosis
     Dosage: 20 MG, QMO (20MG/0.4ML, STARTING AT 4 WEEK AS DIRECTED)
     Route: 058
  2. VITAMINS [Concomitant]
     Active Substance: VITAMINS
     Indication: Product used for unknown indication
     Route: 065
  3. B12 [Concomitant]
     Indication: Product used for unknown indication
     Route: 065
  4. VITAMIN D3 [Concomitant]
     Active Substance: CHOLECALCIFEROL
     Indication: Product used for unknown indication
     Route: 065
  5. LIALDA [Concomitant]
     Active Substance: MESALAMINE
     Indication: Product used for unknown indication
     Route: 065
  6. ADDERALL [Concomitant]
     Active Substance: AMPHETAMINE ASPARTATE\AMPHETAMINE SULFATE\DEXTROAMPHETAMINE SACCHARATE\DEXTROAMPHETAMINE SULFATE
     Indication: Product used for unknown indication
     Route: 065
  7. GABAPENTIN [Concomitant]
     Active Substance: GABAPENTIN
     Indication: Product used for unknown indication
     Route: 065
  8. TROKENDI XR [Concomitant]
     Active Substance: TOPIRAMATE
     Indication: Product used for unknown indication
     Route: 065
  9. VITAMIN B COMPLEX [Concomitant]
     Active Substance: CYANOCOBALAMIN\DEXPANTHENOL\NIACINAMIDE\PYRIDOXINE HYDROCHLORIDE\RIBOFLAVIN 5^-PHOSPHATE SODIUM\THIA
     Indication: Product used for unknown indication
     Route: 065

REACTIONS (24)
  - Adverse drug reaction [Not Recovered/Not Resolved]
  - Influenza like illness [Not Recovered/Not Resolved]
  - Tremor [Not Recovered/Not Resolved]
  - Chills [Not Recovered/Not Resolved]
  - Tongue biting [Not Recovered/Not Resolved]
  - Pyrexia [Not Recovered/Not Resolved]
  - Pain [Not Recovered/Not Resolved]
  - Headache [Not Recovered/Not Resolved]
  - White blood cell count decreased [Not Recovered/Not Resolved]
  - Illness [Unknown]
  - COVID-19 [Not Recovered/Not Resolved]
  - Upper respiratory tract infection [Unknown]
  - Malaise [Not Recovered/Not Resolved]
  - Throat irritation [Unknown]
  - Aphonia [Unknown]
  - Diarrhoea [Unknown]
  - Rhinorrhoea [Unknown]
  - Lacrimation increased [Unknown]
  - Paranasal sinus discomfort [Unknown]
  - Inappropriate schedule of product administration [Unknown]
  - Gait disturbance [Not Recovered/Not Resolved]
  - Hirsutism [Unknown]
  - Drug ineffective [Unknown]
  - Pruritus [Unknown]
